FAERS Safety Report 19246395 (Version 4)
Quarter: 2022Q3

REPORT INFORMATION
  Report Type: Spontaneous
  Country: JP (occurrence: JP)
  Receive Date: 20210512
  Receipt Date: 20220714
  Transmission Date: 20221027
  Serious: Yes (Death, Hospitalization, Other)
  Sender: FDA-Public Use
  Company Number: JP-GSKJP-JP2021JPN100890AA

PATIENT

DRUGS (12)
  1. BENLYSTA [Suspect]
     Active Substance: BELIMUMAB
     Indication: Systemic lupus erythematosus
     Dosage: 480 MG
     Route: 041
     Dates: start: 20210319, end: 20210319
  2. BENLYSTA [Suspect]
     Active Substance: BELIMUMAB
     Dosage: 480 MG
     Route: 041
     Dates: start: 20210402, end: 20210402
  3. MEROPENEM [Suspect]
     Active Substance: MEROPENEM
     Dosage: UNK
  4. TEICOPLANIN [Suspect]
     Active Substance: TEICOPLANIN
     Dosage: UNK
  5. MICAFUNGIN SODIUM [Suspect]
     Active Substance: MICAFUNGIN SODIUM
     Dosage: UNK
  6. CELLCEPT [Concomitant]
     Active Substance: MYCOPHENOLATE MOFETIL
     Indication: Lupus nephritis
     Dosage: UNK
     Route: 048
     Dates: start: 202103, end: 202104
  7. PLAQUENIL TABLETS (HYDROXYCHLOROQUINE SULFATE) [Concomitant]
     Indication: Systemic lupus erythematosus
     Dosage: UNK
     Dates: start: 202103, end: 202104
  8. METHYLPREDNISOLONE [Concomitant]
     Active Substance: METHYLPREDNISOLONE
     Indication: Systemic lupus erythematosus
     Dosage: 1000 MG, 2 COURSES OF STEROID PULSE
     Dates: start: 202103
  9. METHYLPREDNISOLONE [Concomitant]
     Active Substance: METHYLPREDNISOLONE
     Indication: Haemophagocytic lymphohistiocytosis
     Dosage: UNK, 2 COURSES
     Dates: start: 202104, end: 202104
  10. METHYLPREDNISOLONE [Concomitant]
     Active Substance: METHYLPREDNISOLONE
     Indication: Disseminated intravascular coagulation
  11. PREDNISOLONE [Concomitant]
     Active Substance: PREDNISOLONE
     Indication: Systemic lupus erythematosus
     Dosage: 50 MG, 1D
     Dates: start: 202103, end: 2021
  12. PREDNISOLONE [Concomitant]
     Active Substance: PREDNISOLONE
     Dosage: APPROXIMATELY 20MG/DAY
     Dates: start: 202104, end: 202104

REACTIONS (12)
  - Haemophagocytic lymphohistiocytosis [Fatal]
  - Disseminated intravascular coagulation [Fatal]
  - Haemorrhagic diathesis [Fatal]
  - Gastrointestinal haemorrhage [Fatal]
  - Liver disorder [Fatal]
  - Pyrexia [Unknown]
  - Jaundice [Unknown]
  - Loss of consciousness [Unknown]
  - Haemodynamic instability [Fatal]
  - Systemic lupus erythematosus [Fatal]
  - Lupus nephritis [Fatal]
  - Disease progression [Fatal]

NARRATIVE: CASE EVENT DATE: 20210401
